FAERS Safety Report 18015741 (Version 2)
Quarter: 2020Q3

REPORT INFORMATION
  Report Type: Spontaneous
  Country: US (occurrence: US)
  Receive Date: 20200713
  Receipt Date: 20200724
  Transmission Date: 20201103
  Serious: No
  Sender: FDA-Public Use
  Company Number: US-PFIZER INC-2020266369

PATIENT
  Age: 21 Year
  Sex: Male

DRUGS (2)
  1. BACTRIM [Concomitant]
     Active Substance: SULFAMETHOXAZOLE\TRIMETHOPRIM
     Indication: ANTIBIOTIC THERAPY
     Dosage: 2 DF, 2X/WEEK (TWO TABLETS TWICE A DAY, TWO DAYS A WEEK)
  2. RAPAMUNE [Suspect]
     Active Substance: SIROLIMUS
     Indication: MALFORMATION VENOUS
     Dosage: 0.5 MG, 2X/DAY; (0.5 MG Q12H)
     Route: 048
     Dates: end: 20200622

REACTIONS (4)
  - Nasal congestion [Unknown]
  - Product use in unapproved indication [Unknown]
  - Off label use [Unknown]
  - Coronavirus test positive [Not Recovered/Not Resolved]

NARRATIVE: CASE EVENT DATE: 20200622
